FAERS Safety Report 10461772 (Version 2)
Quarter: 2014Q4

REPORT INFORMATION
  Report Type: Spontaneous
  Country: JP (occurrence: JP)
  Receive Date: 20140918
  Receipt Date: 20141001
  Transmission Date: 20150528
  Serious: Yes (Death, Other)
  Sender: FDA-Public Use
  Company Number: JP-PFIZER INC-2014257370

PATIENT
  Age: 84 Year
  Sex: Female

DRUGS (1)
  1. METHYLPREDNISOLONE. [Suspect]
     Active Substance: METHYLPREDNISOLONE
     Indication: NEPHRITIS
     Dosage: 500 MG, DAILY
     Route: 041

REACTIONS (5)
  - Pneumonia aspiration [Unknown]
  - Disseminated intravascular coagulation [Unknown]
  - Circulatory collapse [Fatal]
  - Hepatic failure [Unknown]
  - Meningitis cryptococcal [Recovered/Resolved]
